FAERS Safety Report 8583601-9 (Version None)
Quarter: 2012Q3

REPORT INFORMATION
  Report Type: 
  Country: None (occurrence: None)
  Receive Date: 20120809
  Receipt Date: 20120730
  Transmission Date: 20120928
  Serious: Yes (Death)
  Sender: FDA-Public Use
  Company Number: US-BRISTOL-MYERS SQUIBB COMPANY-16816720

PATIENT
  Age: 46 Year
  Sex: Female

DRUGS (10)
  1. RITUXIMAB [Suspect]
     Indication: B-CELL LYMPHOMA
  2. VORINOSTAT [Suspect]
     Indication: B-CELL LYMPHOMA
     Route: 048
  3. CARMUSTINE [Suspect]
     Indication: B-CELL LYMPHOMA
  4. MELPHALAN HYDROCHLORIDE [Suspect]
     Indication: B-CELL LYMPHOMA
  5. IDARUBICIN HCL [Suspect]
     Indication: B-CELL LYMPHOMA
  6. ETOPOSIDE [Suspect]
     Indication: B-CELL LYMPHOMA
  7. ONCOVIN [Suspect]
     Indication: B-CELL LYMPHOMA
  8. DOXORUBICIN HYDROCHLORIDE [Suspect]
     Indication: B-CELL LYMPHOMA
  9. CYCLOPHOSPHAMIDE [Suspect]
     Indication: B-CELL LYMPHOMA
  10. CYTARABINE [Suspect]
     Indication: B-CELL LYMPHOMA
     Dosage: 1 DF: 1.5G/M2

REACTIONS (3)
  - SYSTEMIC MYCOSIS [None]
  - MYELODYSPLASTIC SYNDROME [None]
  - ACUTE MYELOID LEUKAEMIA [None]
